FAERS Safety Report 4636328-X (Version None)
Quarter: 2005Q2

REPORT INFORMATION
  Report Type: 
  Country: None (occurrence: None)
  Receive Date: 20050415
  Receipt Date: 20041018
  Transmission Date: 20051028
  Serious: No
  Sender: FDA-Public Use
  Company Number: US-BRISTOL-MYERS SQUIBB COMPANY-12735510

PATIENT
  Age: 56 Year
  Sex: Male

DRUGS (1)
  1. PARAPLATIN [Suspect]
     Route: 042

REACTIONS (2)
  - DIZZINESS [None]
  - FEELING HOT [None]
